FAERS Safety Report 23034100 (Version 1)
Quarter: 2023Q4

REPORT INFORMATION
  Report Type: Spontaneous
  Country: CO (occurrence: CO)
  Receive Date: 20231005
  Receipt Date: 20231005
  Transmission Date: 20240110
  Serious: Yes (Hospitalization, Other)
  Sender: FDA-Public Use
  Company Number: CO-TAKEDA-2023TUS095220

PATIENT
  Age: 39 Year
  Sex: Male
  Weight: 73 kg

DRUGS (2)
  1. ICLUSIG [Suspect]
     Active Substance: PONATINIB
     Indication: Chronic myeloid leukaemia
     Dosage: 45 MILLIGRAM, QD
     Route: 048
     Dates: start: 20230522
  2. ICLUSIG [Suspect]
     Active Substance: PONATINIB
     Dosage: 30 MILLIGRAM
     Route: 048
     Dates: start: 20230801, end: 20230927

REACTIONS (4)
  - Pancytopenia [Unknown]
  - Gastrointestinal infection [Unknown]
  - Thrombocytopenia [Unknown]
  - Iron deficiency [Unknown]

NARRATIVE: CASE EVENT DATE: 20230601
